FAERS Safety Report 6094420-X (Version None)
Quarter: 2009Q1

REPORT INFORMATION
  Report Type: 
  Country: None (occurrence: None)
  Receive Date: 20090220
  Receipt Date: 20090220
  Transmission Date: 20090719
  Serious: Yes (Other)
  Sender: FDA-Public Use
  Company Number: None

PATIENT
  Age: 67 Year
  Sex: Female
  Weight: 81.6475 kg

DRUGS (2)
  1. ZYVOX [Suspect]
     Indication: LUNG NEOPLASM
     Dosage: 1 TABLET TWICE A DAY PO
     Route: 048
     Dates: start: 20090210, end: 20090213
  2. ZYVOX [Suspect]
     Indication: STAPHYLOCOCCAL INFECTION
     Dosage: 1 TABLET TWICE A DAY PO
     Route: 048
     Dates: start: 20090210, end: 20090213

REACTIONS (3)
  - EYELID OEDEMA [None]
  - PRURITUS [None]
  - RASH GENERALISED [None]
